FAERS Safety Report 6380025-X (Version None)
Quarter: 2009Q3

REPORT INFORMATION
  Report Type: 
  Country: None (occurrence: None)
  Receive Date: 20090928
  Receipt Date: 20090921
  Transmission Date: 20100115
  Serious: Yes (Other)
  Sender: FDA-Public Use
  Company Number: GB-ABBOTT-09P-167-0598621-00

PATIENT
  Age: 45 Year
  Sex: Male
  Weight: 78 kg

DRUGS (18)
  1. NORVIR [Suspect]
     Indication: HIV INFECTION
  2. PREZISTA [Suspect]
     Indication: HIV INFECTION
     Route: 048
     Dates: start: 20080723
  3. RALTEGRAVIR [Suspect]
     Indication: HIV INFECTION
  4. INTELENCE [Suspect]
     Indication: HIV INFECTION
     Route: 048
  5. PREGABALIN [Concomitant]
     Indication: DRUG USE FOR UNKNOWN INDICATION
  6. MORPHINE SULFATE [Concomitant]
     Indication: DRUG USE FOR UNKNOWN INDICATION
  7. ORAMORPH SR [Concomitant]
     Indication: DRUG USE FOR UNKNOWN INDICATION
  8. DAPSONE [Concomitant]
     Indication: DRUG USE FOR UNKNOWN INDICATION
  9. PYRIMETHAMINE [Concomitant]
     Indication: DRUG USE FOR UNKNOWN INDICATION
  10. VALGANCICLOVIR HCL [Concomitant]
     Indication: DRUG USE FOR UNKNOWN INDICATION
  11. DOMPERIDONE [Concomitant]
     Indication: DRUG USE FOR UNKNOWN INDICATION
  12. AZITHROMYCIN [Concomitant]
     Indication: DRUG USE FOR UNKNOWN INDICATION
  13. CALCIUM [Concomitant]
     Indication: DRUG USE FOR UNKNOWN INDICATION
  14. DOCUSATE SODIUM [Concomitant]
     Indication: DRUG USE FOR UNKNOWN INDICATION
  15. IBUPROFEN [Concomitant]
     Indication: DRUG USE FOR UNKNOWN INDICATION
  16. TESTIM [Concomitant]
     Indication: DRUG USE FOR UNKNOWN INDICATION
  17. CACIT VITAMINE D3 [Concomitant]
     Indication: DRUG USE FOR UNKNOWN INDICATION
  18. FUROSEMIDE [Concomitant]
     Indication: DRUG USE FOR UNKNOWN INDICATION

REACTIONS (2)
  - BLOOD CHOLESTEROL INCREASED [None]
  - WEIGHT INCREASED [None]
